FAERS Safety Report 4711799-9 (Version None)
Quarter: 2005Q2

REPORT INFORMATION
  Report Type: 
  Country: None (occurrence: None)
  Receive Date: 20050629
  Receipt Date: 20050527
  Transmission Date: 20051028
  Serious: No
  Sender: FDA-Public Use
  Company Number: 05P-163-0301827-00

PATIENT
  Age: 75 Year
  Sex: Female
  Weight: 35.8342 kg

DRUGS (5)
  1. HUMIRA [Suspect]
     Indication: RHEUMATOID ARTHRITIS
     Dosage: 40 MG, 1 IN 2 WK, SUBCUTANEOUS
     Route: 058
     Dates: start: 20040101
  2. TIZAC [Concomitant]
  3. LORAZEPAM [Concomitant]
  4. CALCIUM GLUCONATE [Concomitant]
  5. ERGOCALCIFEROL [Concomitant]

REACTIONS (2)
  - ABDOMINAL PAIN UPPER [None]
  - CONSTIPATION [None]
